FAERS Safety Report 5337210-5 (Version None)
Quarter: 2007Q2

REPORT INFORMATION
  Report Type: 
  Country: None (occurrence: None)
  Receive Date: 20070529
  Receipt Date: 20070522
  Transmission Date: 20071010
  Serious: Yes (Death)
  Sender: FDA-Public Use
  Company Number: A0652406A

PATIENT
  Age: 73 Year
  Sex: Female

DRUGS (8)
  1. AVANDIA [Suspect]
     Dosage: 4MG TWICE PER DAY
     Route: 048
     Dates: start: 20070102
  2. LASIX [Concomitant]
  3. PLAVIX [Concomitant]
  4. VICODIN [Concomitant]
  5. POTASSIUM ACETATE [Concomitant]
  6. TRAZODONE HCL [Concomitant]
  7. PEPCID [Concomitant]
  8. ALTACE [Concomitant]

REACTIONS (3)
  - DEATH [None]
  - DELUSION [None]
  - IMPAIRED GASTRIC EMPTYING [None]
